FAERS Safety Report 8511486-5 (Version None)
Quarter: 2012Q3

REPORT INFORMATION
  Report Type: 
  Country: None (occurrence: None)
  Receive Date: 20120716
  Receipt Date: 20120706
  Transmission Date: 20120928
  Serious: Yes (Other)
  Sender: FDA-Public Use
  Company Number: US-ASTRAZENECA-2011SE75851

PATIENT
  Age: 73 Year
  Sex: Male
  Weight: 99.8 kg

DRUGS (4)
  1. CENICAR [Concomitant]
     Indication: BLOOD PRESSURE ABNORMAL
  2. PLAVIX [Concomitant]
     Indication: BLOOD PRESSURE ABNORMAL
  3. NEXIUM [Suspect]
     Indication: GASTROOESOPHAGEAL REFLUX DISEASE
     Route: 048
  4. REQUIP [Concomitant]
     Indication: RESTLESS LEGS SYNDROME

REACTIONS (6)
  - GASTROOESOPHAGEAL REFLUX DISEASE [None]
  - IDIOPATHIC PULMONARY FIBROSIS [None]
  - TERMINAL STATE [None]
  - DRUG DOSE OMISSION [None]
  - DYSPEPSIA [None]
  - LUNG DISORDER [None]
